FAERS Safety Report 6356286-X (Version None)
Quarter: 2009Q3

REPORT INFORMATION
  Report Type: 
  Country: None (occurrence: None)
  Receive Date: 20090915
  Receipt Date: 20090909
  Transmission Date: 20100115
  Serious: Yes (Hospitalization)
  Sender: FDA-Public Use
  Company Number: US-KINGPHARMUSA00001-K200901087

PATIENT
  Age: 37 Year
  Sex: Female
  Weight: 113.38 kg

DRUGS (12)
  1. SKELAXIN [Suspect]
     Indication: MUSCLE SPASMS
     Dosage: 800 MG, TID
     Route: 048
     Dates: start: 20090801, end: 20090801
  2. SKELAXIN [Suspect]
     Dosage: UNK
  3. METHADONE HCL [Concomitant]
     Indication: BACK PAIN
     Dosage: 10 MG, QID
  4. LYRICA [Concomitant]
     Indication: BACK PAIN
     Dosage: 75 MG, TID
  5. LYRICA [Concomitant]
     Indication: FIBROMYALGIA
  6. EFFEXOR [Concomitant]
     Indication: DEPRESSION
     Dosage: 150 MG, QD
  7. PAXIL [Concomitant]
     Indication: MIGRAINE
     Dosage: 20 MG, QD
     Dates: start: 19970101
  8. LEVOTHYROXINE SODIUM [Concomitant]
     Indication: BASEDOW'S DISEASE
     Dosage: 100 MCG, QD
  9. ENBREL [Concomitant]
     Indication: RHEUMATOID ARTHRITIS
     Dosage: 50 MG, QW
  10. FOLTRIN [Concomitant]
     Indication: ANAEMIA
     Dosage: UNK
     Route: 048
  11. FOLIC ACID [Concomitant]
     Indication: SUPPLEMENTATION THERAPY
     Dosage: UNK
     Route: 048
  12. CALCIUM + VITAMIN D [Concomitant]
     Indication: SUPPLEMENTATION THERAPY
     Dosage: UNK
     Route: 048

REACTIONS (3)
  - DRUG INEFFECTIVE [None]
  - HYPERTENSION [None]
  - MIGRAINE [None]
